FAERS Safety Report 15294911 (Version 1)
Quarter: 2018Q3

REPORT INFORMATION
  Report Type: Spontaneous
  Country: US (occurrence: US)
  Receive Date: 20180807
  Receipt Date: 20180807
  Transmission Date: 20181010
  Serious: Yes (Disabling, Other)
  Sender: FDA-Public Use
  Company Number: None

PATIENT
  Age: 58 Year
  Sex: Male
  Weight: 112.5 kg

DRUGS (4)
  1. ATORVASTATIN 40MG [Concomitant]
     Active Substance: ATORVASTATIN
  2. FLUOXETINE [Suspect]
     Active Substance: FLUOXETINE HYDROCHLORIDE
     Indication: DEPRESSION
     Route: 048
     Dates: start: 20180105, end: 20180713
  3. HYDROCHLOROTHAIZIDE 25MG [Concomitant]
  4. ATENOLOL 50MG [Concomitant]
     Active Substance: ATENOLOL

REACTIONS (1)
  - Libido disorder [None]

NARRATIVE: CASE EVENT DATE: 20180713
